FAERS Safety Report 24374283 (Version 1)
Quarter: 2024Q3

REPORT INFORMATION
  Report Type: Spontaneous
  Country: US (occurrence: US)
  Receive Date: 20240927
  Receipt Date: 20240927
  Transmission Date: 20241016
  Serious: No
  Sender: FRESENIUS KABI
  Company Number: US-FreseniusKabi-FK202413971

PATIENT
  Age: 57 Year
  Sex: Male
  Weight: 70.3 kg

DRUGS (4)
  1. PROPOFOL [Suspect]
     Active Substance: PROPOFOL
     Indication: Product used for unknown indication
  2. SUFLAVE [Suspect]
     Active Substance: MAGNESIUM SULFATE ANHYDROUS\POLYETHYLENE GLYCOL 3350\POTASSIUM CHLORIDE\SODIUM CHLORIDE\SODIUM SULFA
     Indication: Colonoscopy
     Dosage: 2 X 1 BOTTLE, 1X, ORAL USE?FORM OF ADMINISTRATION: SOLUTION
     Route: 048
     Dates: end: 20240821
  3. LEVOTHYROXINE [Concomitant]
     Active Substance: LEVOTHYROXINE\LEVOTHYROXINE SODIUM
     Indication: Product used for unknown indication
  4. LIOTHYRONINE [Concomitant]
     Active Substance: LIOTHYRONINE
     Indication: Product used for unknown indication

REACTIONS (6)
  - Lymphadenopathy [Recovering/Resolving]
  - Lymph node pain [Recovering/Resolving]
  - Diplopia [Recovering/Resolving]
  - Photophobia [Recovering/Resolving]
  - Hypersomnia [Recovered/Resolved]
  - Vision blurred [Recovering/Resolving]

NARRATIVE: CASE EVENT DATE: 20240801
